FAERS Safety Report 5521262-3 (Version None)
Quarter: 2007Q4

REPORT INFORMATION
  Report Type: 
  Country: None (occurrence: None)
  Receive Date: 20071119
  Receipt Date: 20071114
  Transmission Date: 20080405
  Serious: Yes (Hospitalization)
  Sender: FDA-Public Use
  Company Number: JP-ROXANE LABORATORIES, INC-2007-BP-24516RO

PATIENT
  Age: 76 Year
  Sex: Female

DRUGS (6)
  1. METHOTREXATE [Suspect]
     Indication: RHEUMATOID ARTHRITIS
  2. PREDNISOLONE [Suspect]
     Indication: RHEUMATOID ARTHRITIS
  3. LEVOFLOXACIN [Concomitant]
     Indication: BACTERIAL INFECTION
  4. SULFAMETHOXAZOLE [Concomitant]
     Indication: PNEUMOCYSTIS JIROVECI PNEUMONIA
  5. IMMUNE GLOBULIN INTRAVENOUS (HUMAN) [Concomitant]
     Indication: HYPOGAMMAGLOBULINAEMIA
  6. ACYCLOVIR [Concomitant]
     Indication: HERPES VIRUS INFECTION
     Route: 042

REACTIONS (8)
  - BACTERIAL INFECTION [None]
  - BLISTER [None]
  - DUODENAL ULCER [None]
  - HERPES VIRUS INFECTION [None]
  - HYPOGAMMAGLOBULINAEMIA [None]
  - PNEUMOCYSTIS JIROVECI PNEUMONIA [None]
  - RESPIRATORY FAILURE [None]
  - SKIN ULCER [None]
